FAERS Safety Report 7970363-9 (Version None)
Quarter: 2011Q4

REPORT INFORMATION
  Report Type: 
  Country: None (occurrence: None)
  Receive Date: 20111212
  Receipt Date: 20111208
  Transmission Date: 20120403
  Serious: Yes (Other)
  Sender: FDA-Public Use
  Company Number: DE-SANOFI-AVENTIS-2011SA080710

PATIENT
  Age: 75 Year
  Sex: Female

DRUGS (6)
  1. MARCUMAR [Concomitant]
     Route: 065
  2. CORTISONE ACETATE [Concomitant]
     Route: 065
  3. LEFLUNOMIDE [Suspect]
     Route: 048
  4. AMITRIPTYLINE HCL [Concomitant]
     Route: 065
  5. PANTOPRAZOLE SODIUM [Concomitant]
     Route: 065
  6. LEVOTHYROXINE SODIUM [Concomitant]
     Route: 065

REACTIONS (1)
  - ASCITES [None]
